FAERS Safety Report 16792303 (Version 1)
Quarter: 2019Q3

REPORT INFORMATION
  Report Type: Spontaneous
  Country: US (occurrence: US)
  Receive Date: 20190910
  Receipt Date: 20190910
  Transmission Date: 20191005
  Serious: Yes (Hospitalization)
  Sender: FDA-Public Use
  Company Number: PHHY2019US207781

PATIENT
  Age: 78 Year
  Sex: Female

DRUGS (1)
  1. ATENOLOL. [Suspect]
     Active Substance: ATENOLOL
     Indication: HYPERTENSION
     Dosage: UNK
     Route: 065

REACTIONS (12)
  - Myasthenia gravis [Unknown]
  - Blood lactic acid increased [Unknown]
  - Troponin I increased [Unknown]
  - Hypertension [Unknown]
  - Respiratory failure [Unknown]
  - Hypoxia [Unknown]
  - Akinesia [Unknown]
  - Eyelid ptosis [Unknown]
  - Apnoea [Unknown]
  - Tachycardia [Unknown]
  - Muscular weakness [Unknown]
  - Depression [Unknown]
